FAERS Safety Report 14582880 (Version 1)
Quarter: 2018Q1

REPORT INFORMATION
  Report Type: Spontaneous
  Country: DE (occurrence: DE)
  Receive Date: 20180228
  Receipt Date: 20180228
  Transmission Date: 20180509
  Serious: Yes (Hospitalization)
  Sender: FDA-Public Use
  Company Number: DE-AMGEN-DEUNI2018024259

PATIENT
  Age: 58 Year
  Sex: Male
  Weight: 95 kg

DRUGS (36)
  1. FOLINIC ACID [Concomitant]
     Active Substance: LEUCOVORIN
     Indication: COLORECTAL CANCER
     Dosage: UNK MG, Q2WK (DOSAGES BETWEEN 210 MG AND 464 MG)
     Route: 042
     Dates: start: 20140217, end: 20141118
  2. FOLINIC ACID [Concomitant]
     Active Substance: LEUCOVORIN
     Dosage: 1 UNK, Q2WK (DOSAGES BETWEEN 456 MG AND 464 MG)
     Route: 042
     Dates: start: 20140217, end: 20140902
  3. FLUOROURACIL. [Concomitant]
     Active Substance: FLUOROURACIL
     Dosage: UNK MG, Q2WK (DOSAGES BETWEEN 1368 MG AND 1392 MG)
     Route: 041
     Dates: start: 20140217, end: 20140903
  4. TAVEGIL [Concomitant]
     Active Substance: CLEMASTINE FUMARATE
     Indication: ALLERGY PROPHYLAXIS
     Dosage: UNK
     Route: 065
  5. RAMIPRIL. [Concomitant]
     Active Substance: RAMIPRIL
     Indication: HYPERTENSION
     Dosage: 10 MG, QD
     Route: 048
  6. ONDANSETRON [Concomitant]
     Active Substance: ONDANSETRON
     Indication: NAUSEA
     Dosage: UNK
     Route: 065
  7. XELODA [Suspect]
     Active Substance: CAPECITABINE
     Indication: COLORECTAL CANCER
     Dosage: 3420 MG, UNK
     Route: 048
  8. NOVALGIN (METAMIZOLE SODIUM) [Concomitant]
     Active Substance: METAMIZOLE SODIUM
     Indication: ABDOMINAL PAIN UPPER
     Dosage: 20 (DROP), UNK
     Route: 048
  9. FLUOROURACIL. [Concomitant]
     Active Substance: FLUOROURACIL
     Dosage: UNK MG, Q2WK (DOSAGES BETWEEN 420 MG AND 928 MG)
     Route: 040
     Dates: start: 20131007, end: 20141118
  10. FOLI-CELL [Concomitant]
     Dosage: 1368 MG, Q2WK
     Route: 065
     Dates: start: 20140203
  11. KEVATRIL [Concomitant]
     Active Substance: GRANISETRON HYDROCHLORIDE
     Indication: ALLERGY PROPHYLAXIS
     Dosage: 3 MG, UNK
     Route: 042
  12. FORTECORTIN [Concomitant]
     Active Substance: DEXAMETHASONE
     Indication: ALLERGY PROPHYLAXIS
     Dosage: 4 MG, UNK
     Route: 042
  13. TILIDIN [Concomitant]
     Active Substance: NALOXONE HYDROCHLORIDE\TILIDINE HYDROCHLORIDE
     Indication: ABDOMINAL PAIN UPPER
     Dosage: UNK
     Route: 048
  14. SOSTRIL [Concomitant]
     Active Substance: RANITIDINE HYDROCHLORIDE
     Indication: ALLERGY PROPHYLAXIS
     Dosage: UNK
     Route: 065
  15. REMERGIL [Concomitant]
     Active Substance: MIRTAZAPINE
     Indication: DEPRESSION
     Dosage: 30 MG, QD
     Route: 048
  16. FLUOROURACIL. [Concomitant]
     Active Substance: FLUOROURACIL
     Indication: COLORECTAL CANCER
     Dosage: UNK MG, Q2WK (DOSAGES BETWEEN 450 MG AND 458 MG)
     Route: 042
     Dates: start: 20131007, end: 20140203
  17. FLUOROURACIL. [Concomitant]
     Active Substance: FLUOROURACIL
     Dosage: UNK MG, Q2WK (DOSAGES BETWEEN 630 MG AND 1392 MG)
     Route: 041
     Dates: start: 20131007, end: 20141117
  18. FOLI-CELL [Concomitant]
     Indication: COLORECTAL CANCER
     Dosage: UNK MG, Q2WK (DOSAGES BETWEEN 900 MG AND 1374 MG)
     Route: 042
     Dates: start: 20131007, end: 20140203
  19. IMODIUM [Concomitant]
     Active Substance: LOPERAMIDE HYDROCHLORIDE
     Indication: DIARRHOEA
     Dosage: UNK
     Route: 065
  20. ATROPIN [Concomitant]
     Active Substance: ATROPINE
     Indication: BRADYCARDIA
     Dosage: UNK
     Route: 065
  21. TAZOBAC [Concomitant]
     Active Substance: PIPERACILLIN SODIUM\TAZOBACTAM SODIUM
     Indication: URINARY TRACT OBSTRUCTION
     Dosage: 13.5 MG, QD
     Route: 042
     Dates: start: 20140830
  22. AVASTIN [Suspect]
     Active Substance: BEVACIZUMAB
     Indication: COLORECTAL CANCER METASTATIC
     Dosage: 450 MG, Q2WK
     Route: 065
     Dates: start: 20131007
  23. AVASTIN [Suspect]
     Active Substance: BEVACIZUMAB
     Dosage: 750 MG, Q2WK
     Route: 042
     Dates: start: 20140602
  24. FLUOROURACIL. [Concomitant]
     Active Substance: FLUOROURACIL
     Dosage: UNK MG, Q2WK (DOSAGES BETWEEN 912 MG AND 928 MG)
     Route: 040
     Dates: start: 20140217, end: 20140428
  25. EMEND [Concomitant]
     Active Substance: APREPITANT
     Indication: NAUSEA
     Dosage: UNK
     Route: 065
  26. DIMETICON [Concomitant]
     Indication: FLATULENCE
     Dosage: UNK
     Route: 065
  27. HYDROCHLOROTHIAZIDE. [Concomitant]
     Active Substance: HYDROCHLOROTHIAZIDE
     Indication: HYPERTENSION
     Dosage: 12.5 MG, QD
     Route: 048
     Dates: start: 20140602
  28. LOPERAMID [Concomitant]
     Active Substance: LOPERAMIDE
     Indication: DIARRHOEA
     Dosage: UNK
     Route: 065
  29. OXALIPLATIN. [Concomitant]
     Active Substance: OXALIPLATIN
     Indication: COLORECTAL CANCER
     Dosage: UNK MG, Q2WK (DOSAGES BETWEEN 89.25MG AND 153.17MG)
     Route: 065
     Dates: start: 20140902, end: 20141117
  30. MYDOCALM [Concomitant]
     Active Substance: TOLPERISONE
     Dosage: 1 DF, QD
     Route: 048
  31. TRAMAL [Concomitant]
     Active Substance: TRAMADOL
     Indication: ABDOMINAL PAIN UPPER
     Dosage: 50 MG, UNK
     Route: 048
  32. ARANESP [Suspect]
     Active Substance: DARBEPOETIN ALFA
     Indication: ANAEMIA
     Dosage: 500 MG, UNK
     Route: 058
  33. IRINOTECAN [Concomitant]
     Active Substance: IRINOTECAN
     Indication: COLORECTAL CANCER
     Dosage: UNK MG, Q2WK (DOSAGES BETWEEN 405 MG AND 417.6 MG)
     Route: 042
     Dates: start: 20131007, end: 20140407
  34. KOHLE [Concomitant]
     Dosage: UNK
     Route: 065
  35. CIPROBAY [Concomitant]
     Active Substance: CIPROFLOXACIN
     Indication: HAEMATURIA
     Dosage: 99 MG, UNK
     Route: 048
  36. PREDNISOLON [Concomitant]
     Active Substance: PREDNISOLONE
     Indication: HYPERSENSITIVITY
     Dosage: 15 MG, QD
     Route: 048

REACTIONS (5)
  - Thrombosis [Recovered/Resolved]
  - Dyspnoea [Recovered/Resolved]
  - Abdominal pain upper [Recovered/Resolved]
  - Fatigue [Recovered/Resolved]
  - Pulmonary embolism [Recovered/Resolved]

NARRATIVE: CASE EVENT DATE: 20140602
